FAERS Safety Report 8492354-4 (Version None)
Quarter: 2012Q3

REPORT INFORMATION
  Report Type: 
  Country: None (occurrence: None)
  Receive Date: 20120706
  Receipt Date: 20120629
  Transmission Date: 20120928
  Serious: Yes (Other)
  Sender: FDA-Public Use
  Company Number: FR-ROCHE-1082238

PATIENT
  Age: 33 Year
  Sex: Female

DRUGS (1)
  1. ZELBORAF [Suspect]
     Indication: PRODUCT USED FOR UNKNOWN INDICATION

REACTIONS (4)
  - PHOTOSENSITIVITY REACTION [None]
  - BRONCHOSPASM [None]
  - TOXIC SKIN ERUPTION [None]
  - URTICARIA [None]
